FAERS Safety Report 26141272 (Version 1)
Quarter: 2025Q4

REPORT INFORMATION
  Report Type: Spontaneous
  Country: IR (occurrence: IR)
  Receive Date: 20251210
  Receipt Date: 20251210
  Transmission Date: 20260117
  Serious: Yes (Hospitalization, Other)
  Sender: CARNEGIE PHARMACEUTICALS LLC
  Company Number: IR-CARNEGIE-001559

PATIENT
  Age: 41 Year
  Sex: Female

DRUGS (2)
  1. DEXAMETHASONE [Concomitant]
     Active Substance: DEXAMETHASONE
     Indication: Eye infection toxoplasmal
     Dosage: 0.4 MG/0.1 ML
     Route: 031
  2. CLINDAMYCIN PHOSPHATE [Suspect]
     Active Substance: CLINDAMYCIN PHOSPHATE
     Indication: Eye infection toxoplasmal
     Dosage: 1 MG/0.1 ML
     Route: 031

REACTIONS (7)
  - Blindness [Not Recovered/Not Resolved]
  - Pupillary reflex impaired [Not Recovered/Not Resolved]
  - Retinal ischaemia [Not Recovered/Not Resolved]
  - Eye infarction [Not Recovered/Not Resolved]
  - Retinal degeneration [Not Recovered/Not Resolved]
  - Macular hole [Not Recovered/Not Resolved]
  - Necrotising retinitis [Not Recovered/Not Resolved]
